FAERS Safety Report 24406408 (Version 1)
Quarter: 2024Q4

REPORT INFORMATION
  Report Type: Spontaneous
  Country: US (occurrence: None)
  Receive Date: 20241005
  Receipt Date: 20241005
  Transmission Date: 20250115
  Serious: Yes (Other)
  Sender: Public
  Company Number: None

PATIENT
  Age: 52 Year
  Sex: Female
  Weight: 86.4 kg

DRUGS (10)
  1. ZEPBOUND [Suspect]
     Active Substance: TIRZEPATIDE
     Indication: Weight control
     Dosage: OTHER QUANTITY : 4 INJECTION(S);?OTHER FREQUENCY : ONCE WEEKLY;?OTHER ROUTE : INJECTED ON LEFT SIDE
     Route: 050
     Dates: start: 20240927, end: 20241005
  2. Olmesartan Medox/HCTZ [Concomitant]
  3. ROSUVASTATIN [Concomitant]
     Active Substance: ROSUVASTATIN
  4. ALBUTEROL SULFATE [Concomitant]
     Active Substance: ALBUTEROL SULFATE
  5. TYLENOL [Concomitant]
     Active Substance: ACETAMINOPHEN
  6. FISH OIL [Concomitant]
     Active Substance: FISH OIL
  7. VITAMIN C [Concomitant]
     Active Substance: ASCORBIC ACID
  8. VITAMIN B [Concomitant]
     Active Substance: VITAMIN B
  9. D [Concomitant]
  10. IRON [Concomitant]
     Active Substance: IRON

REACTIONS (4)
  - Chills [None]
  - Cough [None]
  - Headache [None]
  - Pollakiuria [None]

NARRATIVE: CASE EVENT DATE: 20241001
